FAERS Safety Report 25481705 (Version 1)
Quarter: 2025Q2

REPORT INFORMATION
  Report Type: Spontaneous
  Country: IN (occurrence: IN)
  Receive Date: 20250626
  Receipt Date: 20250626
  Transmission Date: 20250716
  Serious: Yes (Life-Threatening, Hospitalization)
  Sender: ACCORD
  Company Number: IN-Accord-491376

PATIENT
  Age: 30 Year
  Sex: Female

DRUGS (1)
  1. AMLODIPINE [Suspect]
     Active Substance: AMLODIPINE BESYLATE
     Route: 048
     Dates: start: 2024

REACTIONS (4)
  - Intentional overdose [Unknown]
  - Hypotension [Recovering/Resolving]
  - Non-cardiogenic pulmonary oedema [Recovering/Resolving]
  - Bradycardia [Recovered/Resolved]

NARRATIVE: CASE EVENT DATE: 20240101
